FAERS Safety Report 19931989 (Version 1)
Quarter: 2021Q4

REPORT INFORMATION
  Report Type: Spontaneous
  Country: CN (occurrence: CN)
  Receive Date: 20211007
  Receipt Date: 20211007
  Transmission Date: 20220303
  Serious: Yes (Disabling)
  Sender: FDA-Public Use
  Company Number: CN-BAXTER-2021BAX026448

PATIENT
  Age: 44 Year
  Sex: Female
  Weight: 65 kg

DRUGS (17)
  1. CYCLOPHOSPHAMIDE [Suspect]
     Active Substance: CYCLOPHOSPHAMIDE
     Indication: Invasive ductal breast carcinoma
     Dosage: 1ST CYCLE (600 MG/M2 D1)
     Route: 041
     Dates: start: 20200512, end: 20200512
  2. CYCLOPHOSPHAMIDE [Suspect]
     Active Substance: CYCLOPHOSPHAMIDE
     Dosage: 2ND CYCLE (600 MG/M2 D1)
     Route: 041
     Dates: start: 20200605, end: 20200605
  3. CYCLOPHOSPHAMIDE [Suspect]
     Active Substance: CYCLOPHOSPHAMIDE
     Dosage: 3RD CYCLE (600 MG/M2 D1)
     Route: 041
     Dates: start: 20200626, end: 20200626
  4. CYCLOPHOSPHAMIDE [Suspect]
     Active Substance: CYCLOPHOSPHAMIDE
     Dosage: CYCLOPHOSPHAMIDE 0.94GM + 0.9% SODIUM CHLORIDE 100ML, 4TH CYCLE, DAY 1
     Route: 041
     Dates: start: 20200719, end: 20200719
  5. SODIUM CHLORIDE [Suspect]
     Active Substance: SODIUM CHLORIDE
     Indication: Medication dilution
     Dosage: 1ST CYCLE
     Route: 041
  6. SODIUM CHLORIDE [Suspect]
     Active Substance: SODIUM CHLORIDE
     Dosage: 2ND CYCLE
     Route: 041
     Dates: start: 20200605, end: 20200605
  7. SODIUM CHLORIDE [Suspect]
     Active Substance: SODIUM CHLORIDE
     Dosage: 3RD CYCLE
     Route: 041
     Dates: start: 20200626, end: 20200626
  8. SODIUM CHLORIDE [Suspect]
     Active Substance: SODIUM CHLORIDE
     Dosage: CYCLOPHOSPHAMIDE POWDER FOR INJECTION 0.94 + 0.9% SODIUM CHLORIDE INJECTION 100ML, 4TH CYCLE, DAY 1
     Route: 041
     Dates: start: 20200719, end: 20200719
  9. SODIUM CHLORIDE [Suspect]
     Active Substance: SODIUM CHLORIDE
     Dosage: EPIRUBICIN HYDROCHLORIDE INJECTION 140 MG + 0.9% SODIUM CHLORIDE INJECTION 160ML, 4TH CYCLE, DAY 1
     Route: 041
     Dates: start: 20200719, end: 20200719
  10. SODIUM CHLORIDE [Suspect]
     Active Substance: SODIUM CHLORIDE
     Dosage: DOCETAXEL 20MG INJECTION +  0.9% SODIUM CHLORIDE INJECTION 250ML
     Route: 041
     Dates: start: 20200809, end: 20200809
  11. SODIUM CHLORIDE [Suspect]
     Active Substance: SODIUM CHLORIDE
     Dosage: DOCETAXEL INJECTION 100MG + 0.9% SODIUM CHLORIDE INJECTION 500ML
     Route: 041
     Dates: start: 20200809, end: 20200809
  12. EPIRUBICIN HYDROCHLORIDE [Suspect]
     Active Substance: EPIRUBICIN HYDROCHLORIDE
     Indication: Invasive ductal breast carcinoma
     Dosage: 1ST CYCLE
     Route: 041
     Dates: start: 20200512, end: 20200512
  13. EPIRUBICIN HYDROCHLORIDE [Suspect]
     Active Substance: EPIRUBICIN HYDROCHLORIDE
     Dosage: 2ND CYCLE
     Route: 041
     Dates: start: 20200605, end: 20200605
  14. EPIRUBICIN HYDROCHLORIDE [Suspect]
     Active Substance: EPIRUBICIN HYDROCHLORIDE
     Dosage: 3RD CYCLE
     Route: 041
     Dates: start: 20200626, end: 20200626
  15. EPIRUBICIN HYDROCHLORIDE [Suspect]
     Active Substance: EPIRUBICIN HYDROCHLORIDE
     Dosage: EPIRUBICIN HYDROCHLORIDE INJECTION 140 MG + 0.9% SODIUM CHLORIDE INJECTION 160ML, 4TH CYCLE, DAY 1
     Route: 041
     Dates: start: 20200719, end: 20200719
  16. DOCETAXEL [Suspect]
     Active Substance: DOCETAXEL
     Indication: Invasive ductal breast carcinoma
     Dosage: DOCETAXEL INJECTION 20MG +  0.9% SODIUM CHLORIDE INJECTION 250ML
     Route: 041
     Dates: start: 20200809, end: 20200809
  17. DOCETAXEL [Suspect]
     Active Substance: DOCETAXEL
     Dosage: DOCETAXEL INJECTION 100MG + 0.9% SODIUM CHLORIDE INJECTION 500ML
     Route: 041
     Dates: start: 20200809, end: 20200809

REACTIONS (1)
  - Mitral valve prolapse [Not Recovered/Not Resolved]

NARRATIVE: CASE EVENT DATE: 20200830
